FAERS Safety Report 11870037 (Version 2)
Quarter: 2016Q1

REPORT INFORMATION
  Report Type: Spontaneous
  Country: US (occurrence: US)
  Receive Date: 20151228
  Receipt Date: 20160304
  Transmission Date: 20160526
  Serious: Yes (Other)
  Sender: FDA-Public Use
  Company Number: US-TEVA-621426ACC

PATIENT
  Sex: Female

DRUGS (1)
  1. PARAGARD T 380A [Suspect]
     Active Substance: COPPER
     Dates: start: 201508

REACTIONS (4)
  - Complication associated with device [Unknown]
  - Device dislocation [Recovered/Resolved]
  - Pain [Unknown]
  - Device expulsion [Recovered/Resolved]
